FAERS Safety Report 7646278-2 (Version None)
Quarter: 2011Q3

REPORT INFORMATION
  Report Type: 
  Country: None (occurrence: None)
  Receive Date: 20110801
  Receipt Date: 20110726
  Transmission Date: 20111222
  Serious: No
  Sender: FDA-Public Use
  Company Number: US-BIOGENIDEC-2011BI028098

PATIENT
  Sex: Female

DRUGS (5)
  1. TYSABRI [Suspect]
     Indication: MULTIPLE SCLEROSIS
     Route: 042
     Dates: start: 20110201
  2. PROZAC [Concomitant]
  3. AVONEX [Concomitant]
     Indication: MULTIPLE SCLEROSIS
     Route: 030
     Dates: start: 20090310
  4. MEDICATION (NOS) [Concomitant]
     Indication: DIZZINESS
  5. MEDICATION (NOS) [Concomitant]
     Indication: NAUSEA

REACTIONS (8)
  - DEPRESSION [None]
  - ADVERSE DRUG REACTION [None]
  - ANAEMIA [None]
  - TREMOR [None]
  - STRESS [None]
  - ANXIETY [None]
  - IMPAIRED DRIVING ABILITY [None]
  - WEIGHT DECREASED [None]
